FAERS Safety Report 6056536-3 (Version None)
Quarter: 2009Q1

REPORT INFORMATION
  Report Type: 
  Country: None (occurrence: None)
  Receive Date: 20090126
  Receipt Date: 20090126
  Transmission Date: 20090719
  Serious: Yes (Other)
  Sender: FDA-Public Use
  Company Number: None

PATIENT
  Sex: Male

DRUGS (1)
  1. OXCARBAZEPINE [Suspect]
     Indication: EPILEPSY
     Dosage: 750MG AM 600MG PM PO
     Route: 048
     Dates: start: 20080301

REACTIONS (5)
  - BALANCE DISORDER [None]
  - DIZZINESS [None]
  - FATIGUE [None]
  - PRODUCT QUALITY ISSUE [None]
  - SOMNOLENCE [None]
